FAERS Safety Report 14559500 (Version 2)
Quarter: 2018Q1

REPORT INFORMATION
  Report Type: Spontaneous
  Country: DE (occurrence: DE)
  Receive Date: 20180221
  Receipt Date: 20180327
  Transmission Date: 20180509
  Serious: Yes (Hospitalization, Other)
  Sender: FDA-Public Use
  Company Number: DE-BAUSCH-BL-2018-002193

PATIENT
  Age: 62 Year
  Sex: Female
  Weight: 67 kg

DRUGS (28)
  1. VENETOCLAX. [Suspect]
     Active Substance: VENETOCLAX
     Indication: CHRONIC LYMPHOCYTIC LEUKAEMIA
     Dosage: STARTING DOSE: 20 MG, CONTINUOUSLY STARTING IN CYCLE 2 WITH A LOW DOSE ESCALATION TO 50 MG??LAST D.
     Route: 048
  2. OBINUTUZUMAB. [Suspect]
     Active Substance: OBINUTUZUMAB
     Indication: CHRONIC LYMPHOCYTIC LEUKAEMIA
     Dosage: LAST DOSE PRIOR TO ONSET OF FIRST EPISODE OF NEUTROPENIA: 30/NOV/2015; LAST DOSE PRIOR TO ONSET
     Route: 042
  3. SOLU DECORTIN [Concomitant]
     Active Substance: PREDNISOLONE SODIUM SUCCINATE
     Route: 042
  4. FERRO SANOL [Concomitant]
     Active Substance: FERROUS GLYCINE SULFATE
     Indication: PRODUCT USED FOR UNKNOWN INDICATION
     Route: 048
  5. ALLOPURINOL. [Concomitant]
     Active Substance: ALLOPURINOL
     Indication: PRODUCT USED FOR UNKNOWN INDICATION
     Route: 048
  6. PREDNISOLONE. [Suspect]
     Active Substance: PREDNISOLONE
     Indication: PRODUCT USED FOR UNKNOWN INDICATION
     Route: 065
  7. FENISTIL [Concomitant]
     Active Substance: DIMETHINDENE
     Route: 042
  8. NEULASTA [Concomitant]
     Active Substance: PEGFILGRASTIM
     Indication: PRODUCT USED FOR UNKNOWN INDICATION
     Route: 058
  9. RANITIDIN [Concomitant]
     Active Substance: RANITIDINE HYDROCHLORIDE
     Indication: PRODUCT USED FOR UNKNOWN INDICATION
     Route: 042
  10. RANITIDIN [Concomitant]
     Active Substance: RANITIDINE HYDROCHLORIDE
     Route: 042
  11. PROPRANOLOL [Concomitant]
     Active Substance: PROPRANOLOL HYDROCHLORIDE
     Indication: PRODUCT USED FOR UNKNOWN INDICATION
     Route: 048
  12. EUTHYROX [Concomitant]
     Active Substance: LEVOTHYROXINE SODIUM
     Indication: PRODUCT USED FOR UNKNOWN INDICATION
     Route: 048
  13. PANTOPRAZOL [Concomitant]
     Active Substance: PANTOPRAZOLE SODIUM
     Indication: PRODUCT USED FOR UNKNOWN INDICATION
     Route: 065
  14. CIPROFLOXACIN. [Concomitant]
     Active Substance: CIPROFLOXACIN
     Indication: PRODUCT USED FOR UNKNOWN INDICATION
     Route: 048
  15. ZOLEDRONATE [Concomitant]
     Active Substance: ZOLEDRONIC ACID
     Indication: PRODUCT USED FOR UNKNOWN INDICATION
     Route: 042
  16. PARACETAMOL [Concomitant]
     Active Substance: ACETAMINOPHEN
     Route: 048
  17. KALIUM VERLA [Concomitant]
     Active Substance: POTASSIUM CITRATE
     Indication: PRODUCT USED FOR UNKNOWN INDICATION
     Dosage: UNITS:MVAL
     Route: 048
     Dates: start: 20151229, end: 20160101
  18. SOLU DECORTIN [Concomitant]
     Active Substance: PREDNISOLONE SODIUM SUCCINATE
     Indication: PRODUCT USED FOR UNKNOWN INDICATION
     Route: 042
  19. DOXORUBICIN [Suspect]
     Active Substance: DOXORUBICIN
     Indication: PRODUCT USED FOR UNKNOWN INDICATION
     Route: 065
  20. CYCLOPHOSPHAMIDE. [Suspect]
     Active Substance: CYCLOPHOSPHAMIDE
     Indication: PRODUCT USED FOR UNKNOWN INDICATION
     Route: 065
  21. PARACETAMOL [Concomitant]
     Active Substance: ACETAMINOPHEN
     Indication: PRODUCT USED FOR UNKNOWN INDICATION
     Route: 048
  22. FENISTIL [Concomitant]
     Active Substance: DIMETHINDENE
     Indication: PRODUCT USED FOR UNKNOWN INDICATION
     Route: 042
  23. NEULASTA [Concomitant]
     Active Substance: PEGFILGRASTIM
     Route: 058
  24. BENDAMUSTINE HYDROCHLORIDE. [Suspect]
     Active Substance: BENDAMUSTINE HYDROCHLORIDE
     Indication: CHRONIC LYMPHOCYTIC LEUKAEMIA
     Dosage: LAST DOSE PRIOR TO ONSET OF EVENTS ON 16/OCT/2015. CYCLICAL
     Route: 042
     Dates: start: 20151015, end: 20151104
  25. VENETOCLAX. [Suspect]
     Active Substance: VENETOCLAX
     Dosage: LAST DOSE PRIOR TO ONSET OF SECOND EPISODE OF NEUTROPENIA: 24/JAN/2016?DOSE REDUCED; LAST DOSE
     Route: 048
  26. RITUXIMAB. [Suspect]
     Active Substance: RITUXIMAB
     Indication: PRODUCT USED FOR UNKNOWN INDICATION
     Route: 065
  27. VINCRISTINE [Suspect]
     Active Substance: VINCRISTINE
     Indication: PRODUCT USED FOR UNKNOWN INDICATION
     Route: 065
  28. PROPRANOLOL [Concomitant]
     Active Substance: PROPRANOLOL HYDROCHLORIDE
     Route: 048

REACTIONS (4)
  - Thrombocytopenia [Recovered/Resolved]
  - Neutropenia [Not Recovered/Not Resolved]
  - Febrile bone marrow aplasia [Recovered/Resolved]
  - Febrile neutropenia [Recovered/Resolved]

NARRATIVE: CASE EVENT DATE: 20151201
